FAERS Safety Report 8767826 (Version 1)
Quarter: 2012Q4

REPORT INFORMATION
  Report Type: 
  Country: DE (occurrence: DE)
  Receive Date: 20120905
  Receipt Date: 20120905
  Transmission Date: 20130627
  Serious: Yes (Hospitalization)
  Sender: FDA-Public Use
  Company Number: PHHY2012DE074910

PATIENT
  Age: 69 Year
  Sex: Male

DRUGS (2)
  1. OLANZAPINE [Suspect]
     Indication: DELUSIONAL DISORDER, UNSPECIFIED TYPE
     Dosage: 5 mg, UNK
  2. HALOPERIDOL [Suspect]
     Dosage: 5 mg, UNK

REACTIONS (2)
  - Hypothermia [Recovered/Resolved]
  - Atrioventricular block [Recovered/Resolved]
